FAERS Safety Report 9818275 (Version 1)
Quarter: 2014Q1

REPORT INFORMATION
  Report Type: Spontaneous
  Country: CA (occurrence: CA)
  Receive Date: 20140115
  Receipt Date: 20140115
  Transmission Date: 20141002
  Serious: Yes (Life-Threatening)
  Sender: FDA-Public Use
  Company Number: CA-009507513-1401CAN004752

PATIENT
  Age: 59 Year
  Sex: Male
  Weight: 89 kg

DRUGS (6)
  1. EMEND IV [Suspect]
     Dosage: 150 MG, UNK
     Route: 042
  2. DILAUDID [Concomitant]
     Route: 065
  3. LASIX (FUROSEMIDE SODIUM) [Concomitant]
     Route: 065
  4. NORVASC [Concomitant]
     Route: 065
  5. ONDANSETRON [Concomitant]
     Route: 065
  6. PANTOLOC [Concomitant]
     Route: 065

REACTIONS (4)
  - Nasal discomfort [Recovered/Resolved]
  - Drug hypersensitivity [Recovered/Resolved]
  - Dyspnoea [Recovered/Resolved]
  - Flushing [Recovered/Resolved]
